FAERS Safety Report 5240170-9 (Version None)
Quarter: 2007Q1

REPORT INFORMATION
  Report Type: 
  Country: None (occurrence: None)
  Receive Date: 20070216
  Receipt Date: 20070212
  Transmission Date: 20070707
  Serious: Yes (Other)
  Sender: FDA-Public Use
  Company Number: US-PFIZER INC-2007012048

PATIENT
  Age: 26 Year
  Sex: Male
  Weight: 79.4 kg

DRUGS (1)
  1. VIAGRA [Suspect]
     Indication: SUBSTANCE ABUSE

REACTIONS (3)
  - ERECTION INCREASED [None]
  - INTENTIONAL DRUG MISUSE [None]
  - PENILE PAIN [None]
